FAERS Safety Report 25799971 (Version 1)
Quarter: 2025Q3

REPORT INFORMATION
  Report Type: Spontaneous
  Country: GB (occurrence: GB)
  Receive Date: 20250914
  Receipt Date: 20250914
  Transmission Date: 20251021
  Serious: Yes (Other)
  Sender: ALEXION PHARMACEUTICALS
  Company Number: None

PATIENT
  Age: 52 Year

DRUGS (6)
  1. TEZSPIRE [Suspect]
     Active Substance: TEZEPELUMAB-EKKO
     Route: 065
  2. TEZSPIRE [Suspect]
     Active Substance: TEZEPELUMAB-EKKO
  3. ALBUTEROL [Concomitant]
     Active Substance: ALBUTEROL
  4. PREDNISOLONE [Concomitant]
     Active Substance: PREDNISOLONE
  5. ESLICARBAZEPINE [Concomitant]
     Active Substance: ESLICARBAZEPINE
     Route: 065
  6. TRANEXAMIC ACID [Concomitant]
     Active Substance: TRANEXAMIC ACID
     Route: 065

REACTIONS (3)
  - Herpes zoster [Unknown]
  - Rash [Unknown]
  - Rash [Unknown]
